FAERS Safety Report 11877191 (Version 1)
Quarter: 2015Q4

REPORT INFORMATION
  Report Type: Report from Study
  Country: US (occurrence: US)
  Receive Date: 20151229
  Receipt Date: 20151229
  Transmission Date: 20160305
  Serious: Yes (Hospitalization, Other)
  Sender: FDA-Public Use
  Company Number: US-GILEAD-2015-0181548

PATIENT
  Age: 74 Year
  Sex: Female

DRUGS (2)
  1. IDELALISIB [Suspect]
     Active Substance: IDELALISIB
     Dosage: 150 UNK, UNK
     Route: 048
     Dates: start: 20151116
  2. IDELALISIB [Suspect]
     Active Substance: IDELALISIB
     Indication: SPLENIC MARGINAL ZONE LYMPHOMA
     Dosage: 150 MG, BID
     Route: 048
     Dates: start: 20150805

REACTIONS (9)
  - Weight decreased [Unknown]
  - Pneumonia [Unknown]
  - Pyrexia [Unknown]
  - Rash [Unknown]
  - Pleural effusion [Unknown]
  - Pericardial effusion [Unknown]
  - Diarrhoea [Recovered/Resolved]
  - Nausea [Unknown]
  - Candida infection [Unknown]

NARRATIVE: CASE EVENT DATE: 20151023
